FAERS Safety Report 21262927 (Version 1)
Quarter: 2022Q3

REPORT INFORMATION
  Report Type: Report from Study
  Country: IN (occurrence: IN)
  Receive Date: 20220828
  Receipt Date: 20220828
  Transmission Date: 20221026
  Serious: Yes (Other)
  Sender: FDA-Public Use
  Company Number: IN-NOVARTISPH-NVSC2019IN010324

PATIENT
  Age: 82 Year
  Sex: Male

DRUGS (3)
  1. CERITINIB [Suspect]
     Active Substance: CERITINIB
     Indication: Non-small cell lung cancer
     Dosage: 450 MG, QD
     Route: 065
     Dates: start: 20181229, end: 202208
  2. CERITINIB [Suspect]
     Active Substance: CERITINIB
     Dosage: 150 MG, (ALTERNATE DAYS)
     Route: 048
     Dates: start: 20190402
  3. CERITINIB [Suspect]
     Active Substance: CERITINIB
     Dosage: 150 MG, QD
     Route: 065
     Dates: start: 20220302

REACTIONS (3)
  - Cerebral haemorrhage [Unknown]
  - Nausea [Unknown]
  - Product use issue [Unknown]

NARRATIVE: CASE EVENT DATE: 20190402
